FAERS Safety Report 9495385 (Version 3)
Quarter: 2013Q4

REPORT INFORMATION
  Report Type: Spontaneous
  Country: JP (occurrence: JP)
  Receive Date: 20130903
  Receipt Date: 20131029
  Transmission Date: 20140711
  Serious: Yes (Death)
  Sender: FDA-Public Use
  Company Number: JP-GLAXOSMITHKLINE-B0919640A

PATIENT
  Age: 68 Year
  Sex: Male

DRUGS (5)
  1. REVOLADE [Suspect]
     Indication: IMMUNE THROMBOCYTOPENIC PURPURA
     Route: 048
     Dates: start: 20130808, end: 20130814
  2. REVOLADE [Suspect]
     Indication: IMMUNE THROMBOCYTOPENIC PURPURA
     Route: 048
     Dates: start: 20130815, end: 20130815
  3. IMURAN [Concomitant]
     Dosage: 50MG PER DAY
     Route: 048
     Dates: end: 20130815
  4. LANSAP [Concomitant]
     Route: 048
     Dates: start: 20130726, end: 20130801
  5. TAKEPRON [Concomitant]
     Route: 048
     Dates: start: 20130802

REACTIONS (2)
  - Interstitial lung disease [Fatal]
  - Respiratory failure [Fatal]
